FAERS Safety Report 12336697 (Version 1)
Quarter: 2016Q2

REPORT INFORMATION
  Report Type: Spontaneous
  Country: US (occurrence: None)
  Receive Date: 20160504
  Receipt Date: 20160504
  Transmission Date: 20160815
  Serious: Yes (Hospitalization)
  Sender: FDA-Public Use
  Company Number: None

PATIENT
  Age: 35 Year
  Sex: Female
  Weight: 65.1 kg

DRUGS (1)
  1. IOHEXOL [Suspect]
     Active Substance: IOHEXOL
     Indication: CARDIOVASCULAR DISORDER
     Route: 042
     Dates: start: 20160426, end: 20160426

REACTIONS (12)
  - Pruritus [None]
  - Palpitations [None]
  - Rash [None]
  - Urticaria [None]
  - Chest pain [None]
  - Tachycardia [None]
  - Anaphylactic reaction [None]
  - Tachypnoea [None]
  - Dyspnoea [None]
  - Cardio-respiratory arrest [None]
  - Documented hypersensitivity to administered product [None]
  - Anxiety [None]

NARRATIVE: CASE EVENT DATE: 20160426
